FAERS Safety Report 6921920-X (Version None)
Quarter: 2010Q3

REPORT INFORMATION
  Report Type: 
  Country: None (occurrence: None)
  Receive Date: 20100806
  Receipt Date: 20100701
  Transmission Date: 20110219
  Serious: No
  Sender: FDA-Public Use
  Company Number: 2010-08997

PATIENT
  Age: 61 Year
  Sex: Male

DRUGS (1)
  1. RAPAFLO [Suspect]
     Indication: HYPERTONIC BLADDER
     Dosage: 8 MG AT NIGHT, ORAL
     Route: 048
     Dates: start: 20100601

REACTIONS (2)
  - DRUG INEFFECTIVE [None]
  - EJACULATION FAILURE [None]
